FAERS Safety Report 15869105 (Version 1)
Quarter: 2019Q1

REPORT INFORMATION
  Report Type: Spontaneous
  Country: PH (occurrence: PH)
  Receive Date: 20190125
  Receipt Date: 20190125
  Transmission Date: 20190417
  Serious: Yes (Hospitalization, Other)
  Sender: FDA-Public Use
  Company Number: PH-ALEXION PHARMACEUTICALS INC.-A201901052

PATIENT
  Sex: Female

DRUGS (1)
  1. SOLIRIS [Suspect]
     Active Substance: ECULIZUMAB
     Indication: MYASTHENIA GRAVIS
     Dosage: UNK
     Route: 065

REACTIONS (10)
  - Eyelid ptosis [Unknown]
  - Posture abnormal [Unknown]
  - Facial paralysis [Unknown]
  - Muscular weakness [Unknown]
  - Dyspnoea [Unknown]
  - Dysarthria [Unknown]
  - Gait disturbance [Unknown]
  - Fatigue [Unknown]
  - Mastication disorder [Unknown]
  - Dysphagia [Unknown]
